FAERS Safety Report 11320162 (Version 1)
Quarter: 2015Q3

REPORT INFORMATION
  Report Type: Spontaneous
  Country: US (occurrence: US)
  Receive Date: 20150729
  Receipt Date: 20150729
  Transmission Date: 20151125
  Serious: No
  Sender: FDA-Public Use
  Company Number: US-TEVA-573032USA

PATIENT
  Sex: Female

DRUGS (1)
  1. ESTAZOLAM. [Suspect]
     Active Substance: ESTAZOLAM
     Indication: SLEEP DISORDER
     Dates: start: 2000

REACTIONS (2)
  - Mastication disorder [Unknown]
  - Dry mouth [Unknown]
